FAERS Safety Report 18572411 (Version 1)
Quarter: 2020Q4

REPORT INFORMATION
  Report Type: Report from Study
  Country: CA (occurrence: CA)
  Receive Date: 20201202
  Receipt Date: 20201202
  Transmission Date: 20210114
  Serious: Yes (Other)
  Sender: FDA-Public Use
  Company Number: PHHY2015CA120420

PATIENT
  Age: 52 Year
  Sex: Female

DRUGS (4)
  1. CALCIUM [Concomitant]
     Active Substance: CALCIUM
     Indication: BONE DISORDER
     Route: 065
  2. ZYKADIA [Suspect]
     Active Substance: CERITINIB
     Indication: NON-SMALL CELL LUNG CANCER
     Dosage: 750 MG, QD
     Route: 048
     Dates: start: 20150922
  3. VITAMIN D [Concomitant]
     Active Substance: VITAMIN D NOS
     Indication: BONE DISORDER
     Route: 065
  4. ZYKADIA [Suspect]
     Active Substance: CERITINIB
     Dosage: UNK
     Route: 048
     Dates: end: 201901

REACTIONS (10)
  - Chest pain [Unknown]
  - Second primary malignancy [Not Recovered/Not Resolved]
  - Hunger [Unknown]
  - Cough [Unknown]
  - Illness [Unknown]
  - Vomiting [Recovering/Resolving]
  - Diarrhoea [Recovering/Resolving]
  - Brain neoplasm [Not Recovered/Not Resolved]
  - Hypopnoea [Unknown]
  - Treatment failure [Unknown]

NARRATIVE: CASE EVENT DATE: 201901
